FAERS Safety Report 20187402 (Version 1)
Quarter: 2021Q4

REPORT INFORMATION
  Report Type: Spontaneous
  Country: US (occurrence: None)
  Receive Date: 20211214
  Receipt Date: 20211214
  Transmission Date: 20220303
  Serious: Yes (Death)
  Sender: FDA-Public Use
  Company Number: None

PATIENT
  Age: 86 Year
  Sex: Male
  Weight: 85 kg

DRUGS (1)
  1. ENFORTUMAB VEDOTIN [Suspect]
     Active Substance: ENFORTUMAB VEDOTIN
     Indication: Transitional cell cancer of the renal pelvis and ureter
     Dosage: OTHER FREQUENCY : AS PER CHEMO CYCLE;?
     Route: 042
     Dates: start: 20211103, end: 20211117

REACTIONS (12)
  - Drug eruption [None]
  - Atrial fibrillation [None]
  - Asthenia [None]
  - Sepsis [None]
  - Skin exfoliation [None]
  - Blood lactic acid increased [None]
  - Pancytopenia [None]
  - Acute respiratory failure [None]
  - Pneumonia aspiration [None]
  - Encephalopathy [None]
  - Delirium [None]
  - General physical health deterioration [None]

NARRATIVE: CASE EVENT DATE: 20211121
